FAERS Safety Report 8461572-3 (Version None)
Quarter: 2012Q2

REPORT INFORMATION
  Report Type: 
  Country: None (occurrence: None)
  Receive Date: 20120625
  Receipt Date: 20120619
  Transmission Date: 20120825
  Serious: Yes (Other)
  Sender: FDA-Public Use
  Company Number: PHEH2012US012333

PATIENT
  Sex: Male

DRUGS (4)
  1. PEPCID [Concomitant]
  2. GLEEVEC [Suspect]
     Indication: CHRONIC MYELOID LEUKAEMIA
     Dosage: 300 MG BID
     Route: 048
     Dates: start: 20080130
  3. IRON [Concomitant]
  4. EPOGEN [Concomitant]

REACTIONS (5)
  - ATRIOVENTRICULAR BLOCK [None]
  - HAEMOGLOBIN DECREASED [None]
  - RENAL IMPAIRMENT [None]
  - GASTROENTERITIS [None]
  - AORTIC VALVE INCOMPETENCE [None]
